FAERS Safety Report 19714309 (Version 1)
Quarter: 2021Q3

REPORT INFORMATION
  Report Type: Spontaneous
  Country: US (occurrence: US)
  Receive Date: 20210818
  Receipt Date: 20210818
  Transmission Date: 20211014
  Serious: No
  Sender: FDA-Public Use
  Company Number: None

PATIENT
  Age: 43 Year
  Sex: Female
  Weight: 90 kg

DRUGS (1)
  1. MYCOPHENOLATE MOFETIL. [Suspect]
     Active Substance: MYCOPHENOLATE MOFETIL
     Indication: RHEUMATOID ARTHRITIS
     Route: 048
     Dates: start: 20210326, end: 20210426

REACTIONS (5)
  - Arthritis [None]
  - Arthralgia [None]
  - Off label use [None]
  - Therapy cessation [None]
  - Condition aggravated [None]

NARRATIVE: CASE EVENT DATE: 20210813
